FAERS Safety Report 14302869 (Version 2)
Quarter: 2018Q1

REPORT INFORMATION
  Report Type: Spontaneous
  Country: JP (occurrence: JP)
  Receive Date: 20171219
  Receipt Date: 20180201
  Transmission Date: 20180509
  Serious: Yes (Death, Hospitalization, Other)
  Sender: FDA-Public Use
  Company Number: JP-009507513-1712JPN001369J

PATIENT
  Age: 53 Year
  Sex: Male

DRUGS (3)
  1. KEYTRUDA [Suspect]
     Active Substance: PEMBROLIZUMAB
     Indication: NON-SMALL CELL LUNG CANCER
     Dosage: 200 MG, Q3W
     Route: 041
     Dates: start: 20171016, end: 20171106
  2. NAIXAN [Concomitant]
     Active Substance: NAPROXEN SODIUM
     Dosage: UNK
     Route: 065
     Dates: end: 20171106
  3. XARELTO [Concomitant]
     Active Substance: RIVAROXABAN
     Dosage: UNK
     Route: 065
     Dates: end: 20171106

REACTIONS (3)
  - Malignant neoplasm progression [Fatal]
  - Diarrhoea haemorrhagic [Unknown]
  - Diarrhoea haemorrhagic [Recovered/Resolved]

NARRATIVE: CASE EVENT DATE: 201710
